FAERS Safety Report 8525108 (Version 5)
Quarter: 2013Q3

REPORT INFORMATION
  Report Type: Spontaneous
  Country: US (occurrence: US)
  Receive Date: 20120423
  Receipt Date: 20130702
  Transmission Date: 20140515
  Serious: Yes (Other)
  Sender: FDA-Public Use
  Company Number: US-PFIZER INC-2012094130

PATIENT
  Sex: Male

DRUGS (3)
  1. XALATAN [Suspect]
     Indication: GLAUCOMA
     Dosage: 1 GTT, 1X/DAY AT BED TIME
     Route: 047
  2. VIAGRA [Suspect]
     Dosage: UNK
  3. VIAGRA [Suspect]
     Dosage: 100 MG, UNK

REACTIONS (2)
  - Herpes zoster [Unknown]
  - Drug effect incomplete [Unknown]
